FAERS Safety Report 8025676 (Version 2)
Quarter: 2014Q2

REPORT INFORMATION
  Report Type: Spontaneous
  Country: US (occurrence: US)
  Receive Date: 20110623
  Receipt Date: 20140512
  Transmission Date: 20141212
  Serious: Yes (Death)
  Sender: FDA-Public Use
  Company Number: 2011P1007078

PATIENT
  Age: 75 Year
  Sex: Male
  Weight: 77.11 kg

DRUGS (7)
  1. NORTRIPTYLINE HCL [Suspect]
     Indication: ANXIETY
     Route: 048
     Dates: start: 2008
  2. NORTRIPTYLINE HCL [Suspect]
     Indication: DEPRESSION
     Route: 048
     Dates: start: 2008
  3. LISINOPRIL [Concomitant]
  4. JANUMET [Concomitant]
  5. INSULIN [Concomitant]
  6. METOPROLOL TARTRATE [Concomitant]
  7. FLOMAX [Concomitant]

REACTIONS (6)
  - Cardiac disorder [Fatal]
  - Pneumothorax [Fatal]
  - Knee arthroplasty [Unknown]
  - Toxicity to various agents [Fatal]
  - Drug administration error [Unknown]
  - Sudden death [None]
